APPROVED DRUG PRODUCT: AGGRENOX
Active Ingredient: ASPIRIN; DIPYRIDAMOLE
Strength: 25MG;200MG **Federal Register determination that product was not discontinued or withdrawn for safety or effectiveness reasons**
Dosage Form/Route: CAPSULE, EXTENDED RELEASE;ORAL
Application: N020884 | Product #001
Applicant: BOEHRINGER INGELHEIM PHARMACEUTICALS INC
Approved: Nov 22, 1999 | RLD: Yes | RS: No | Type: DISCN